FAERS Safety Report 10957067 (Version 1)
Quarter: 2015Q1

REPORT INFORMATION
  Report Type: Spontaneous
  Country: US (occurrence: US)
  Receive Date: 20150326
  Receipt Date: 20150326
  Transmission Date: 20150721
  Serious: No
  Sender: FDA-Public Use
  Company Number: US-PFIZER INC-2015100858

PATIENT
  Age: 54 Year
  Sex: Male
  Weight: 113.38 kg

DRUGS (1)
  1. VIAGRA [Suspect]
     Active Substance: SILDENAFIL CITRATE
     Indication: OESOPHAGEAL SPASM
     Dosage: 25 MG, 2X/DAY
     Dates: start: 201411

REACTIONS (3)
  - Pre-existing condition improved [Unknown]
  - Product use issue [Unknown]
  - Therapeutic response unexpected [Unknown]
